FAERS Safety Report 13592147 (Version 4)
Quarter: 2017Q2

REPORT INFORMATION
  Report Type: Spontaneous
  Country: CN (occurrence: CN)
  Receive Date: 20170529
  Receipt Date: 20170620
  Transmission Date: 20170830
  Serious: No
  Sender: FDA-Public Use
  Company Number: CN-ASTRAZENECA-2017SE51493

PATIENT
  Age: 9 Year
  Sex: Female

DRUGS (5)
  1. PULMICORT TURBUHALER [Suspect]
     Active Substance: BUDESONIDE
     Route: 055
  2. SYMBICORT [Suspect]
     Active Substance: BUDESONIDE\FORMOTEROL FUMARATE DIHYDRATE
     Indication: ASTHMA
     Dosage: STRENGTH: 80UG
     Route: 055
  3. PULMICORT TURBUHALER [Suspect]
     Active Substance: BUDESONIDE
     Dosage: STRENGTH: 100UG, PULMICORT TURBUHALER FOR ONE INHALATION
     Route: 055
     Dates: start: 20170419
  4. PULMICORT TURBUHALER [Suspect]
     Active Substance: BUDESONIDE
     Dosage: RESPLUES
     Route: 055
  5. SYMBICORT [Suspect]
     Active Substance: BUDESONIDE\FORMOTEROL FUMARATE DIHYDRATE
     Indication: ASTHMA
     Dosage: STRENGTH: 80UG, EVERY OTHER DAY
     Route: 055

REACTIONS (9)
  - Dizziness [Recovered/Resolved]
  - Discomfort [Unknown]
  - Eructation [Recovered/Resolved]
  - Tremor [Recovered/Resolved]
  - Nausea [Recovered/Resolved]
  - Dyspnoea [Unknown]
  - Tic [Unknown]
  - Dysgeusia [Recovered/Resolved]
  - Cough [Recovering/Resolving]
